FAERS Safety Report 5140668-8 (Version None)
Quarter: 2006Q4

REPORT INFORMATION
  Report Type: 
  Country: None (occurrence: None)
  Receive Date: 20061025
  Receipt Date: 20061011
  Transmission Date: 20070319
  Serious: Yes (Hospitalization)
  Sender: FDA-Public Use
  Company Number: 8019611

PATIENT
  Age: 24 Year
  Sex: Female
  Weight: 60 kg

DRUGS (1)
  1. KEPPRA [Suspect]
     Indication: EPILEPSY
     Dosage: 500 MG 2/D PO
     Route: 048

REACTIONS (3)
  - DRUG EXPOSURE DURING PREGNANCY [None]
  - HYPOKALAEMIA [None]
  - VOMITING [None]
